FAERS Safety Report 9162588 (Version 2)
Quarter: 2013Q1

REPORT INFORMATION
  Report Type: Spontaneous
  Country: JP (occurrence: JP)
  Receive Date: 20130314
  Receipt Date: 20130326
  Transmission Date: 20140127
  Serious: Yes (Other)
  Sender: FDA-Public Use
  Company Number: JP-AMGEN-JPNSP2013016451

PATIENT
  Age: 78 Year
  Sex: Male

DRUGS (9)
  1. NPLATE [Suspect]
     Indication: IDIOPATHIC THROMBOCYTOPENIC PURPURA
     Dosage: 6 MUG, 1X/WEEK
     Route: 058
     Dates: end: 20130216
  2. PREDONINE                          /00016201/ [Suspect]
     Dosage: 5 MG, BID
     Route: 048
  3. DIART [Suspect]
     Dosage: 60 MG, UNK
     Route: 048
  4. HEPARIN SODIUM [Concomitant]
     Dosage: UNK
     Route: 065
  5. BLOPRESS [Concomitant]
     Dosage: UNK
     Route: 048
  6. NEXIUM                             /01479302/ [Concomitant]
     Dosage: UNK
     Route: 048
  7. MAGLAX [Concomitant]
     Dosage: UNK
     Route: 048
  8. MUCOSOLVAN [Concomitant]
     Dosage: UNK
     Route: 048
  9. BAKTAR [Concomitant]
     Dosage: UNK
     Route: 048

REACTIONS (2)
  - Cerebral infarction [Recovered/Resolved with Sequelae]
  - Thrombosis [Recovered/Resolved]
